FAERS Safety Report 12380241 (Version 2)
Quarter: 2016Q2

REPORT INFORMATION
  Report Type: Report from Study
  Country: KR (occurrence: KR)
  Receive Date: 20160518
  Receipt Date: 20160623
  Transmission Date: 20160815
  Serious: Yes (Life-Threatening, Other)
  Sender: FDA-Public Use
  Company Number: KR-ACCORD-040628

PATIENT
  Age: 16 Year
  Sex: Female

DRUGS (3)
  1. ETOPOSIDE. [Suspect]
     Active Substance: ETOPOSIDE
     Indication: OSTEOSARCOMA
     Dosage: FROM DAY - 8 TO DAY -5
  2. CARBOPLATIN. [Suspect]
     Active Substance: CARBOPLATIN
     Indication: OSTEOSARCOMA
     Dosage: FROM DAY - 8 TO DAY -5
  3. MELPHALAN [Suspect]
     Active Substance: MELPHALAN
     Indication: OSTEOSARCOMA
     Dosage: ON DAY -6.?ALSO RECEIVED 140 MG/M^2 CYCLICAL ON DAY -7

REACTIONS (1)
  - Blood creatinine increased [Recovered/Resolved]

NARRATIVE: CASE EVENT DATE: 20060312
